FAERS Safety Report 5677443-1 (Version None)
Quarter: 2008Q1

REPORT INFORMATION
  Report Type: 
  Country: None (occurrence: None)
  Receive Date: 20080324
  Receipt Date: 20080314
  Transmission Date: 20080703
  Serious: Yes (Other)
  Sender: FDA-Public Use
  Company Number: US-JNJFOC-20080304439

PATIENT

DRUGS (3)
  1. TOPAMAX [Suspect]
  2. TOPAMAX [Suspect]
     Indication: CONVULSION
  3. TOPROL-XL [Suspect]
     Indication: DRUG USE FOR UNKNOWN INDICATION

REACTIONS (4)
  - CONVULSION [None]
  - DRUG DISPENSING ERROR [None]
  - HYPOTENSION [None]
  - MEDICATION ERROR [None]
